FAERS Safety Report 13740492 (Version 1)
Quarter: 2017Q3

REPORT INFORMATION
  Report Type: Spontaneous
  Country: US (occurrence: US)
  Receive Date: 20170710
  Receipt Date: 20170710
  Transmission Date: 20171127
  Serious: No
  Sender: FDA-Public Use
  Company Number: None

PATIENT
  Age: 63 Year
  Sex: Male
  Weight: 94.5 kg

DRUGS (12)
  1. METOPROLOL. [Concomitant]
     Active Substance: METOPROLOL
  2. VITAMIN D [Concomitant]
     Active Substance: CHOLECALCIFEROL
  3. ANTIHISTAMINES [Concomitant]
     Active Substance: ANTIHISTAMINES NOS
  4. PRALUENT [Suspect]
     Active Substance: ALIROCUMAB
     Indication: CORONARY ARTERY DISEASE
     Dosage: ?          OTHER FREQUENCY:BIMONTHLY;?
     Route: 058
     Dates: start: 20170201
  5. VITAMIN B12 [Concomitant]
     Active Substance: CYANOCOBALAMIN
  6. PRALUENT [Suspect]
     Active Substance: ALIROCUMAB
     Indication: HYPERLIPIDAEMIA
     Dosage: ?          OTHER FREQUENCY:BIMONTHLY;?
     Route: 058
     Dates: start: 20170201
  7. PANTOPRAZOLE [Concomitant]
     Active Substance: PANTOPRAZOLE
  8. TERAZOSIN [Concomitant]
     Active Substance: TERAZOSIN\TERAZOSIN HYDROCHLORIDE
  9. ATIVAN [Concomitant]
     Active Substance: LORAZEPAM
  10. SILDENAFIL. [Concomitant]
     Active Substance: SILDENAFIL
  11. ASPIRIN. [Concomitant]
     Active Substance: ASPIRIN
  12. CELEBREX [Concomitant]
     Active Substance: CELECOXIB

REACTIONS (6)
  - Arthralgia [None]
  - Joint swelling [None]
  - Obsessive-compulsive disorder [None]
  - Hypersensitivity [None]
  - Cognitive disorder [None]
  - Influenza like illness [None]

NARRATIVE: CASE EVENT DATE: 20170315
